FAERS Safety Report 9099866 (Version 3)
Quarter: 2013Q1

REPORT INFORMATION
  Report Type: Report from Study
  Country: CA (occurrence: CA)
  Receive Date: 20130214
  Receipt Date: 20130318
  Transmission Date: 20140127
  Serious: Yes (Life-Threatening, Hospitalization)
  Sender: FDA-Public Use
  Company Number: CA-AMGEN-CANCT2012005163

PATIENT
  Age: 61 Year
  Sex: Male
  Weight: 59.8 kg

DRUGS (12)
  1. PANITUMUMAB [Suspect]
     Indication: COLORECTAL CANCER
     Dosage: 395 MG, Q2WK
     Route: 042
     Dates: start: 20111222, end: 20120105
  2. OXALIPLATIN [Concomitant]
     Indication: COLORECTAL CANCER
     Dosage: 157 MG, Q2WK
     Route: 042
     Dates: start: 20111222, end: 20120105
  3. FLUOROURACIL [Concomitant]
     Indication: COLORECTAL CANCER
     Dosage: 740 MG, Q2WK
     Route: 040
     Dates: start: 20111222, end: 20120105
  4. LEUCOVORIN [Concomitant]
     Indication: COLORECTAL CANCER
     Dosage: 740 MG, Q2WK
     Route: 042
     Dates: start: 20111222, end: 20120105
  5. HALDOL [Concomitant]
     Indication: NAUSEA
     Dosage: UNK
     Dates: start: 20120113
  6. STEMETIL [Concomitant]
     Indication: NAUSEA
     Dosage: UNK
     Dates: start: 20111222
  7. LORAZEPAM [Concomitant]
     Indication: ANXIETY
     Dosage: UNK
     Dates: start: 20111222
  8. TRAMACET [Concomitant]
     Indication: BACK PAIN
     Dosage: UNK
     Dates: start: 201101
  9. TRAMACET [Concomitant]
     Indication: NECK PAIN
  10. ARTHROTEC [Concomitant]
     Indication: BACK PAIN
     Dosage: UNK
     Dates: start: 2006
  11. ARTHROTEC [Concomitant]
     Indication: NECK PAIN
  12. IMODIUM [Concomitant]
     Indication: DIARRHOEA
     Dosage: UNK
     Dates: start: 2005

REACTIONS (1)
  - Sepsis [Recovered/Resolved]
